FAERS Safety Report 6628398-4 (Version None)
Quarter: 2010Q1

REPORT INFORMATION
  Report Type: 
  Country: None (occurrence: None)
  Receive Date: 20100311
  Receipt Date: 20100208
  Transmission Date: 20100710
  Serious: No
  Sender: FDA-Public Use
  Company Number: JP-ROCHE-689509

PATIENT
  Age: 33 Year
  Sex: Female

DRUGS (1)
  1. TAMIFLU [Suspect]
     Indication: INFLUENZA
     Dosage: FORM:OTHER ORAL FORMULATION
     Route: 048
     Dates: start: 20091119, end: 20091119

REACTIONS (3)
  - DRUG EXPOSURE DURING PREGNANCY [None]
  - RASH [None]
  - VOMITING [None]
